FAERS Safety Report 8478832-2 (Version None)
Quarter: 2012Q2

REPORT INFORMATION
  Report Type: 
  Country: None (occurrence: None)
  Receive Date: 20120402
  Receipt Date: 20111013
  Transmission Date: 20120825
  Serious: Yes (Disabling, Other)
  Sender: FDA-Public Use
  Company Number: 289286USA

PATIENT
  Sex: Female

DRUGS (3)
  1. FOSAMAX PLUS D [Suspect]
  2. ALENDRONATE SODIUM [Suspect]
     Indication: OSTEOPENIA
     Dosage: 10 MG (70 MG, 1 IN 1 WK)
     Dates: start: 20000101, end: 20100201
  3. ALENDRONATE SODIUM [Suspect]

REACTIONS (3)
  - FEMUR FRACTURE [None]
  - STRESS FRACTURE [None]
  - GAIT DISTURBANCE [None]
